FAERS Safety Report 9588259 (Version 1)
Quarter: 2013Q4

REPORT INFORMATION
  Report Type: Spontaneous
  Country: US (occurrence: US)
  Receive Date: 20131003
  Receipt Date: 20131003
  Transmission Date: 20140711
  Serious: No
  Sender: FDA-Public Use
  Company Number: US-AMGEN-USASP2012063489

PATIENT
  Age: 60 Year
  Sex: Female
  Weight: 92.52 kg

DRUGS (15)
  1. ENBREL [Suspect]
     Indication: PRODUCT USED FOR UNKNOWN INDICATION
     Dosage: 50 MG, QWK
     Route: 058
  2. METHOTREXATE [Concomitant]
     Dosage: 2.5 MG, UNK
  3. FISH OIL [Concomitant]
     Dosage: UNK
  4. FOLIC ACID [Concomitant]
     Dosage: 1 MG, UNK
  5. SERTRALINE [Concomitant]
     Dosage: 100 MG, UNK
  6. TRAMADOL HCL [Concomitant]
     Indication: PAIN
     Dosage: 50 MG, UNK
  7. ROPINIROLE [Concomitant]
     Dosage: 0.25 MG, UNK
  8. HYDROXYCHLOROQUINE [Concomitant]
     Dosage: 200 MG, UNK
  9. MULTIVITAMIN                       /00097801/ [Concomitant]
     Dosage: UNK
  10. OMEPRAZOLE [Concomitant]
     Dosage: 10 MG, UNK
  11. VITAMIN C                          /00008001/ [Concomitant]
     Dosage: 250 MG, UNK
  12. B COMPLEX                          /00212701/ [Concomitant]
     Dosage: UNK
  13. METOPROLOL [Concomitant]
     Dosage: 25 MG, ER
  14. ZETIA [Concomitant]
     Dosage: 10 MG, UNK
  15. BABY ASPIRIN [Concomitant]
     Dosage: 81 MG, UNK

REACTIONS (3)
  - Pain in extremity [Unknown]
  - Back pain [Unknown]
  - Pain [Unknown]
